FAERS Safety Report 6204124-8 (Version None)
Quarter: 2009Q2

REPORT INFORMATION
  Report Type: 
  Country: None (occurrence: None)
  Receive Date: 20090521
  Receipt Date: 20090521
  Transmission Date: 20091009
  Serious: Yes (Hospitalization)
  Sender: FDA-Public Use
  Company Number: None

PATIENT
  Sex: Female
  Weight: 47 kg

DRUGS (5)
  1. CYCLOPHOSPHAMIDE [Suspect]
     Dosage: 920 MG
  2. DOXORUBICIN HYDROCHLORIDE [Suspect]
     Dosage: 92 MG
  3. FOSAMAX [Concomitant]
  4. MULTIVITAMIN OTC [Concomitant]
  5. MURO #28 EYE DROP [Concomitant]

REACTIONS (6)
  - ALOPECIA [None]
  - BLOOD PRESSURE DECREASED [None]
  - ERYTHEMA [None]
  - FEBRILE NEUTROPENIA [None]
  - GINGIVAL ULCERATION [None]
  - TOOTH FRACTURE [None]
